FAERS Safety Report 8923591 (Version 2)
Quarter: 2013Q1

REPORT INFORMATION
  Report Type: Spontaneous
  Country: ES (occurrence: None)
  Receive Date: 20121114
  Receipt Date: 20121119
  Transmission Date: 20140127
  Serious: Yes (Hospitalization)
  Sender: FDA-Public Use
  Company Number: E2B_7171884

PATIENT
  Age: 80 Year
  Sex: Female

DRUGS (6)
  1. EUTHYROX [Suspect]
     Indication: HYPOTHYROIDISM
     Route: 048
     Dates: start: 20120423
  2. METFORMIN (METFORMIN) [Suspect]
     Indication: TYPE 2 DIABETES MELLITUS
     Route: 048
     Dates: start: 20111104, end: 20120409
  3. SEROXAT [Suspect]
     Indication: DEPRESSION
     Route: 048
     Dates: start: 20120402, end: 20120409
  4. PLAVIX (CLOPIDOGREL) [Concomitant]
  5. NOCTAMID (LORMETAZEPAM) [Concomitant]
  6. SERETIDE [Concomitant]

REACTIONS (6)
  - Pancreatitis acute [None]
  - Pancreatic necrosis [None]
  - Pleural effusion [None]
  - Bronchiectasis [None]
  - Gallbladder enlargement [None]
  - Lymphadenopathy [None]
